FAERS Safety Report 4385054-3 (Version None)
Quarter: 2004Q2

REPORT INFORMATION
  Report Type: 
  Country: None (occurrence: None)
  Receive Date: 20040607
  Receipt Date: 20030416
  Transmission Date: 20050107
  Serious: Yes (Hospitalization)
  Sender: FDA-Public Use
  Company Number: 336394

PATIENT
  Age: 16 Year
  Sex: Female
  Weight: 54.4 kg

DRUGS (3)
  1. ACCUTANE [Suspect]
     Indication: ACNE CYSTIC
     Dosage: ORAL
     Route: 048
     Dates: start: 20030101, end: 20030304
  2. ORTHO TRI-CYCLEN [Suspect]
     Indication: ACNE
     Dosage: ORAL
     Route: 048
     Dates: start: 20021023, end: 20030304
  3. PREDNISONE TAB [Concomitant]

REACTIONS (4)
  - BENIGN INTRACRANIAL HYPERTENSION [None]
  - CSF PRESSURE INCREASED [None]
  - CSF TEST ABNORMAL [None]
  - VISUAL FIELD DEFECT [None]
